FAERS Safety Report 5845608-1 (Version None)
Quarter: 2008Q3

REPORT INFORMATION
  Report Type: 
  Country: None (occurrence: None)
  Receive Date: 20080814
  Receipt Date: 20080812
  Transmission Date: 20090109
  Serious: No
  Sender: FDA-Public Use
  Company Number: JP-EISAI MEDICAL RESEARCH-E2090-00523-SPO-JP

PATIENT
  Age: 39 Year
  Sex: Male

DRUGS (4)
  1. EXCEGRAN [Suspect]
     Indication: EPILEPSY
     Route: 048
     Dates: start: 20040101
  2. GABAPEN [Suspect]
     Indication: DRUG USE FOR UNKNOWN INDICATION
     Route: 048
     Dates: start: 20070101
  3. PHENOBARBITAL TAB [Concomitant]
  4. DEPAKENE [Concomitant]
     Route: 048
     Dates: start: 20010101

REACTIONS (1)
  - LEUKOCYTOCLASTIC VASCULITIS [None]
